FAERS Safety Report 19953984 (Version 1)
Quarter: 2021Q4

REPORT INFORMATION
  Report Type: Spontaneous
  Country: US (occurrence: US)
  Receive Date: 20211014
  Receipt Date: 20211014
  Transmission Date: 20220303
  Serious: No
  Sender: FDA-Public Use
  Company Number: US-GLAXOSMITHKLINE-US2021AMR209295

PATIENT
  Age: 60 Year
  Sex: Female

DRUGS (1)
  1. BENLYSTA [Suspect]
     Active Substance: BELIMUMAB
     Indication: Product used for unknown indication
     Dosage: UNK, Q 4 WEEKS
     Route: 042

REACTIONS (4)
  - Haematology test abnormal [Unknown]
  - Liver function test increased [Unknown]
  - Serum ferritin increased [Unknown]
  - Therapy cessation [Unknown]
